FAERS Safety Report 5518657-0 (Version None)
Quarter: 2007Q4

REPORT INFORMATION
  Report Type: 
  Country: None (occurrence: None)
  Receive Date: 20071115
  Receipt Date: 20071107
  Transmission Date: 20080405
  Serious: Yes (Other)
  Sender: FDA-Public Use
  Company Number: US-WYE-H00707107

PATIENT
  Sex: Female
  Weight: 68.55 kg

DRUGS (10)
  1. PREMARIN [Suspect]
     Indication: MENOPAUSAL SYMPTOMS
     Route: 048
     Dates: start: 19750101, end: 20040101
  2. PREMARIN [Suspect]
     Route: 048
     Dates: end: 20070101
  3. TRIAMTERENE AND HYDROCHLOROTHIAZIDE [Concomitant]
     Indication: HYPERTENSION
     Dosage: 37.5MG/25MG
     Route: 048
  4. IBUPROFEN [Concomitant]
     Indication: ARTHRITIS
     Dosage: 200MG EVERY EIGHT HOURS PRN
     Route: 048
  5. METFORMIN HCL [Concomitant]
     Indication: DIABETES MELLITUS
     Route: 048
  6. ASPIRIN [Concomitant]
     Indication: HYPERTENSION
     Route: 048
  7. ASPIRIN [Concomitant]
     Indication: HYPERLIPIDAEMIA
  8. GABAPENTIN [Concomitant]
     Indication: NEUROPATHY
     Route: 048
  9. ATORVASTATIN CALCIUM [Concomitant]
     Indication: HYPERLIPIDAEMIA
     Dosage: 20MG DAILY
     Route: 048
  10. IRBESARTAN [Concomitant]
     Indication: HYPERTENSION
     Dosage: 150MG DAILY
     Route: 048

REACTIONS (1)
  - BREAST CANCER METASTATIC [None]
